FAERS Safety Report 4355145-1 (Version None)
Quarter: 2004Q2

REPORT INFORMATION
  Report Type: 
  Country: None (occurrence: None)
  Receive Date: 20040504
  Receipt Date: 20040421
  Transmission Date: 20050107
  Serious: Yes (Hospitalization)
  Sender: FDA-Public Use
  Company Number: 2004210021ES

PATIENT
  Age: 42 Year
  Sex: Female

DRUGS (4)
  1. ALPRAZOLAM [Suspect]
     Dates: start: 20030101, end: 20030506
  2. NEUPOGEN [Suspect]
     Indication: PERIPHERAL BLOOD STEM CELL APHERESIS
     Dosage: 5 MG/KG, QD
     Dates: start: 20030106, end: 20030406
  3. STEMGEN [Suspect]
     Indication: PERIPHERAL BLOOD STEM CELL APHERESIS
     Dosage: 20 MG/KG, QD
     Dates: start: 20030106, end: 20030406
  4. CETIRIZINE HCL [Suspect]
     Dates: start: 20030305, end: 20030806

REACTIONS (2)
  - DYSPNOEA EXERTIONAL [None]
  - LETHARGY [None]
